FAERS Safety Report 11682008 (Version 1)
Quarter: 2015Q4

REPORT INFORMATION
  Report Type: Other
  Country: FR (occurrence: FR)
  Receive Date: 20151029
  Receipt Date: 20151029
  Transmission Date: 20160304
  Serious: Yes (Hospitalization)
  Sender: FDA-Public Use
  Company Number: FR-MYLANLABS-2015M1035621

PATIENT

DRUGS (8)
  1. PERINDOPRIL [Concomitant]
     Active Substance: PERINDOPRIL
     Indication: PRODUCT USED FOR UNKNOWN INDICATION
     Dosage: 4 MG, QD
  2. CARBOPLATINE MYLAN 10 MG/ML SOLUTION POUR PERFUSION [Suspect]
     Active Substance: CARBOPLATIN
     Indication: PRODUCT USED FOR UNKNOWN INDICATION
     Dosage: UNK UNK, 3XW
     Route: 042
     Dates: start: 201308, end: 201402
  3. CARBOPLATINE MYLAN 10 MG/ML SOLUTION POUR PERFUSION [Suspect]
     Active Substance: CARBOPLATIN
     Dosage: UNK UNK, CYCLE
     Route: 042
     Dates: start: 20150703
  4. CARBOPLATINE MYLAN 10 MG/ML SOLUTION POUR PERFUSION [Suspect]
     Active Substance: CARBOPLATIN
     Dosage: UNK
     Route: 042
     Dates: start: 20150814
  5. PACLITAXEL. [Concomitant]
     Active Substance: PACLITAXEL
     Indication: PRODUCT USED FOR UNKNOWN INDICATION
     Dosage: 140 MG/M2, UNK
     Dates: start: 201308, end: 201402
  6. CARBOPLATINE MYLAN 10 MG/ML SOLUTION POUR PERFUSION [Suspect]
     Active Substance: CARBOPLATIN
     Dosage: UNK
     Dates: start: 20150724
  7. PACLITAXEL. [Concomitant]
     Active Substance: PACLITAXEL
     Dosage: 140 MG/M2, UNK
     Dates: start: 2015
  8. TARDYFERON [Concomitant]
     Active Substance: FERROUS SULFATE\FOLIC ACID
     Indication: PRODUCT USED FOR UNKNOWN INDICATION
     Dosage: 80 MG, QD

REACTIONS (5)
  - Injection related reaction [Recovered/Resolved]
  - Hypotension [Recovered/Resolved]
  - Malaise [Recovered/Resolved]
  - Hypothermia [Recovered/Resolved]
  - Erythema [Recovered/Resolved]

NARRATIVE: CASE EVENT DATE: 20150724
